FAERS Safety Report 5326723-8 (Version None)
Quarter: 2007Q2

REPORT INFORMATION
  Report Type: 
  Country: None (occurrence: None)
  Receive Date: 20070516
  Receipt Date: 20070508
  Transmission Date: 20071010
  Serious: Yes (Hospitalization)
  Sender: FDA-Public Use
  Company Number: DE-SHR-DE-2007-016528

PATIENT
  Age: 76 Year
  Sex: Female

DRUGS (1)
  1. MAGNEVIST [Suspect]
     Dosage: 15 ML, 1 DOSE
     Dates: start: 20070426, end: 20070426

REACTIONS (2)
  - MUCOUS MEMBRANE DISORDER [None]
  - URTICARIA [None]
